FAERS Safety Report 10166024 (Version 2)
Quarter: 2014Q2

REPORT INFORMATION
  Report Type: Report from Study
  Country: ZA (occurrence: ZA)
  Receive Date: 20140511
  Receipt Date: 20140521
  Transmission Date: 20141212
  Serious: Yes (Death, Hospitalization)
  Sender: FDA-Public Use
  Company Number: ZA-ROCHE-1394172

PATIENT
  Age: 51 Year
  Sex: Male

DRUGS (2)
  1. MIRCERA [Suspect]
     Indication: RENAL FAILURE
     Route: 058
     Dates: start: 20090908
  2. MIRCERA [Suspect]
     Route: 058
     Dates: start: 20140318, end: 201404

REACTIONS (2)
  - Brain death [Fatal]
  - Road traffic accident [Fatal]
